FAERS Safety Report 9258438 (Version 2)
Quarter: 2013Q2

REPORT INFORMATION
  Report Type: Spontaneous
  Country: DK (occurrence: DK)
  Receive Date: 20130426
  Receipt Date: 20130621
  Transmission Date: 20140414
  Serious: Yes (Death)
  Sender: FDA-Public Use
  Company Number: PHHY2013DK041027

PATIENT
  Age: 61 Year
  Sex: Male
  Weight: 68 kg

DRUGS (3)
  1. SERTRALIN HEXAL [Suspect]
     Indication: DEPRESSION
     Dosage: 50 MG, BID
     Dates: start: 20121214
  2. MIRTAZAPIN HEXAL [Suspect]
     Indication: DEPRESSION
     Dosage: 30 MG, QD
     Dates: start: 20130108
  3. OXAPAX [Suspect]
     Indication: SEDATIVE THERAPY
     Dosage: 7.5 MG, QID
     Dates: start: 20130108

REACTIONS (1)
  - Completed suicide [Fatal]
